FAERS Safety Report 21127206 (Version 1)
Quarter: 2022Q3

REPORT INFORMATION
  Report Type: Spontaneous
  Country: US (occurrence: US)
  Receive Date: 20220725
  Receipt Date: 20220725
  Transmission Date: 20221027
  Serious: No
  Sender: FDA-Public Use
  Company Number: US-ABBVIE-21K-163-4105877-00

PATIENT
  Age: 62 Year
  Sex: Female

DRUGS (1)
  1. SYNTHROID [Suspect]
     Active Substance: LEVOTHYROXINE SODIUM
     Indication: Product used for unknown indication
     Dosage: USP(0.05 MG)
     Route: 048

REACTIONS (23)
  - Peripheral swelling [Unknown]
  - Hypoaesthesia [Unknown]
  - Paraesthesia [Unknown]
  - Muscle spasms [Unknown]
  - Feeling cold [Unknown]
  - Limb discomfort [Unknown]
  - Muscle spasms [Unknown]
  - Thirst [Unknown]
  - Constipation [Unknown]
  - Abdominal distension [Unknown]
  - Vision blurred [Unknown]
  - Tinnitus [Unknown]
  - Fatigue [Unknown]
  - Lethargy [Unknown]
  - Up and down phenomenon [Unknown]
  - Bladder disorder [Unknown]
  - Abdominal pain upper [Unknown]
  - Rash [Unknown]
  - Blood pressure increased [Unknown]
  - Pruritus [Unknown]
  - Asthenia [Unknown]
  - Alopecia [Unknown]
  - Gait disturbance [Unknown]
